FAERS Safety Report 6661011-9 (Version None)
Quarter: 2010Q1

REPORT INFORMATION
  Report Type: 
  Country: None (occurrence: None)
  Receive Date: 20100331
  Receipt Date: 20100325
  Transmission Date: 20100710
  Serious: Yes (Hospitalization, Other)
  Sender: FDA-Public Use
  Company Number: CA-BAYER-201017648NA

PATIENT
  Sex: Male

DRUGS (2)
  1. AVELOX [Suspect]
     Indication: INFECTION
     Route: 048
  2. AVELOX [Suspect]
     Route: 048

REACTIONS (4)
  - ERYTHEMA [None]
  - INFECTION [None]
  - NERVOUS SYSTEM DISORDER [None]
  - TREMOR [None]
